FAERS Safety Report 14705161 (Version 2)
Quarter: 2021Q2

REPORT INFORMATION
  Report Type: Report from Study
  Country: CA (occurrence: CA)
  Receive Date: 20180402
  Receipt Date: 20210623
  Transmission Date: 20210716
  Serious: Yes (Hospitalization)
  Sender: FDA-Public Use
  Company Number: CA-JNJFOC-20180339911

PATIENT
  Age: 34 Year
  Sex: Female

DRUGS (1)
  1. SIMPONI [Suspect]
     Active Substance: GOLIMUMAB
     Indication: ARTHRITIS REACTIVE
     Dosage: STRENGTH = 50 MG
     Route: 058
     Dates: start: 20151107

REACTIONS (4)
  - Off label use [Unknown]
  - Pneumonia [Unknown]
  - Product use in unapproved indication [Unknown]
  - Infection [Unknown]

NARRATIVE: CASE EVENT DATE: 20151107
